FAERS Safety Report 9398884 (Version 1)
Quarter: 2013Q3

REPORT INFORMATION
  Report Type: Spontaneous
  Country: US (occurrence: US)
  Receive Date: 20130712
  Receipt Date: 20130712
  Transmission Date: 20140515
  Serious: No
  Sender: FDA-Public Use
  Company Number: US-UPSHER-SMITH LABORATORIES, INC.-13002241

PATIENT
  Age: 64 Year
  Sex: Male

DRUGS (3)
  1. PACERONE (USL) [Suspect]
     Indication: VENTRICULAR FIBRILLATION
     Dosage: 100 MG, QD
     Route: 048
     Dates: start: 20130410
  2. BETA BLOCKING AGENTS [Concomitant]
     Indication: VENTRICULAR FIBRILLATION
     Dosage: UNK
  3. ANTIHYPERTENSIVES [Concomitant]
     Indication: HYPERTENSION
     Dosage: UNK

REACTIONS (4)
  - Muscular weakness [Not Recovered/Not Resolved]
  - Dizziness [Not Recovered/Not Resolved]
  - Fatigue [Not Recovered/Not Resolved]
  - Nausea [Not Recovered/Not Resolved]
